FAERS Safety Report 6973293-4 (Version None)
Quarter: 2010Q3

REPORT INFORMATION
  Report Type: 
  Country: None (occurrence: None)
  Receive Date: 20100909
  Receipt Date: 20100902
  Transmission Date: 20110219
  Serious: Yes (Hospitalization, Disabling)
  Sender: FDA-Public Use
  Company Number: PHHO2010BR03742

PATIENT
  Sex: Female
  Weight: 77 kg

DRUGS (2)
  1. NEORAL [Suspect]
     Indication: RENAL TRANSPLANT
     Dosage: 100 MG, UNK
     Route: 048
     Dates: start: 20091225
  2. CERTICAN [Suspect]
     Indication: RENAL TRANSPLANT
     Dosage: 10 MG, UNK
     Route: 048
     Dates: start: 20100119

REACTIONS (4)
  - BACK PAIN [None]
  - GROIN PAIN [None]
  - OEDEMA [None]
  - SPINAL FRACTURE [None]
